FAERS Safety Report 11177387 (Version 1)
Quarter: 2015Q2

REPORT INFORMATION
  Report Type: Spontaneous
  Country: FR (occurrence: FR)
  Receive Date: 20150610
  Receipt Date: 20150610
  Transmission Date: 20150821
  Serious: Yes (Hospitalization)
  Sender: FDA-Public Use
  Company Number: FR-TEVA-568364ISR

PATIENT
  Age: 28 Year
  Sex: Female

DRUGS (4)
  1. ACUPAN [Concomitant]
     Active Substance: NEFOPAM HYDROCHLORIDE
     Dosage: 4 DOSAGE FORMS DAILY;
     Route: 030
  2. LEELOO [Suspect]
     Active Substance: ETHINYL ESTRADIOL\LEVONORGESTREL
     Indication: ORAL CONTRACEPTION
     Dosage: LEVONORGESTREL 0.1 MG + ETHINYLESTRADIOL 0.02 MG
     Dates: start: 201503, end: 20150423
  3. CORTANCYL [Concomitant]
     Active Substance: PREDNISONE
     Dosage: 55 MILLIGRAM DAILY;
     Route: 048
  4. PARACETAMOL NOS [Concomitant]
     Dosage: 4 GRAM DAILY;
     Route: 048

REACTIONS (2)
  - Subarachnoid haemorrhage [Recovered/Resolved]
  - Thrombophlebitis [Recovered/Resolved]

NARRATIVE: CASE EVENT DATE: 20150423
